FAERS Safety Report 7685036-X (Version None)
Quarter: 2011Q3

REPORT INFORMATION
  Report Type: 
  Country: None (occurrence: None)
  Receive Date: 20110801
  Receipt Date: 20110727
  Transmission Date: 20111222
  Serious: Yes (Other)
  Sender: FDA-Public Use
  Company Number: 2011029179

PATIENT
  Age: 50 Year
  Sex: Female
  Weight: 78.9259 kg

DRUGS (35)
  1. ASCORBIC ACID [Concomitant]
  2. PREDNISONE [Concomitant]
  3. PRAVASTATIN [Concomitant]
  4. IBUPROFEN [Concomitant]
  5. PREMPRO (PROVELLA-14) [Concomitant]
  6. CELEXA [Concomitant]
  7. KLONOPIN [Concomitant]
  8. RANITIDINE [Concomitant]
  9. ATARAX [Concomitant]
  10. PROMETHAZINE [Concomitant]
  11. FOSAMAX (ALENDRONATE SODIUIM) [Concomitant]
  12. CELEBREX [Concomitant]
  13. VICODIN [Concomitant]
  14. GABAPENTIN [Concomitant]
  15. CIPRO [Concomitant]
  16. FLONASE [Concomitant]
  17. CALCIUM + D (OYSTER SHELL CALCIUM WITH VITAMIN D/01675501/) [Concomitant]
  18. FISH OIL (FISH OIL) [Concomitant]
  19. TREXIMET (SUMATRIPTAN) [Concomitant]
  20. VITAMIN B (VITAMIN B) [Concomitant]
  21. CHLORZOXAZONE [Concomitant]
  22. XYZAL (LEVOCETIRIZINE HYDROCHLORIDE) [Concomitant]
  23. THEOPHYLLINE [Concomitant]
  24. HIZENTRA [Suspect]
     Indication: IMMUNODEFICIENCY COMMON VARIABLE
     Dosage: 10 G 1/WEEK, 2 GM, 10 ML VIAL, 50 ML IN 4 SITES OVER 1 HOUR 17 MINUTES, 10 G 1X/WEEK,  SUBCUTANEOUS
     Route: 058
     Dates: start: 20101103, end: 20110630
  25. SEROQUEL [Concomitant]
  26. ALBUTEROL [Concomitant]
  27. TESSALON (BEMZPMATATE) [Concomitant]
  28. MAGNESIUM (MAGNESIUM) [Concomitant]
  29. PROAIR (PROCATEROL HYDROCHLORIDE) [Concomitant]
  30. OMEPRAZOLE [Concomitant]
  31. OXYBUTYNIN [Concomitant]
  32. SINGULAIR [Concomitant]
  33. PRENATAL (PRENATAL /00231801/) [Concomitant]
  34. SYMBICORT [Concomitant]
  35. DIOVAN [Concomitant]

REACTIONS (1)
  - KIDNEY INFECTION [None]
